FAERS Safety Report 7521898-4 (Version None)
Quarter: 2011Q2

REPORT INFORMATION
  Report Type: 
  Country: None (occurrence: None)
  Receive Date: 20110603
  Receipt Date: 20110523
  Transmission Date: 20111010
  Serious: Yes (Death)
  Sender: FDA-Public Use
  Company Number: US-CELGENEUS-163-21880-11053489

PATIENT
  Sex: Male

DRUGS (13)
  1. ACTOS [Concomitant]
     Dosage: 30 MILLIGRAM
     Route: 065
  2. MYCAMINE [Concomitant]
     Dosage: 50 MILLIGRAM
     Route: 050
  3. ASCORBIC ACID [Concomitant]
     Dosage: 500 MILLIGRAM
     Route: 065
  4. CALCIUM +D [Concomitant]
     Route: 065
  5. LEVITRA [Concomitant]
     Dosage: 10 MILLIGRAM
     Route: 065
  6. SENIOR MULTI PLUS [Concomitant]
     Route: 065
  7. REVLIMID [Suspect]
     Indication: MYELODYSPLASTIC SYNDROME
     Dosage: 10 MILLIGRAM
     Route: 048
     Dates: start: 20101201
  8. GLIMEPIRIDE [Concomitant]
     Dosage: 2 MILLIGRAM
     Route: 065
  9. NIASPAN [Concomitant]
     Dosage: 500 MILLIGRAM
     Route: 065
  10. DIGOXIN [Concomitant]
     Dosage: .125 MILLIGRAM
     Route: 065
  11. LANOXIN [Concomitant]
     Dosage: .25 MILLIGRAM
     Route: 065
  12. LOVAZA [Concomitant]
     Dosage: 1000 MILLIGRAM
     Route: 065
  13. BYSTOLIC [Concomitant]
     Dosage: 10 MILLIGRAM
     Route: 065

REACTIONS (1)
  - DEATH [None]
